FAERS Safety Report 20634505 (Version 1)
Quarter: 2022Q1

REPORT INFORMATION
  Report Type: Spontaneous
  Country: US (occurrence: US)
  Receive Date: 20220325
  Receipt Date: 20220325
  Transmission Date: 20220424
  Serious: No
  Sender: FDA-Public Use
  Company Number: US-BRISTOL-MYERS SQUIBB COMPANY-2022-010078

PATIENT
  Age: 46 Year
  Sex: Male
  Weight: 83.01 kg

DRUGS (9)
  1. NULOJIX [Suspect]
     Active Substance: BELATACEPT
     Indication: Lung transplant
     Dosage: VIAL FOR INFUSION
     Route: 042
  2. VITAMIN A [Concomitant]
     Active Substance: VITAMIN A
     Indication: Product used for unknown indication
  3. VITAMIN C [Concomitant]
     Active Substance: ASCORBIC ACID
     Indication: Product used for unknown indication
  4. PULMICORT TURBUHALER [Concomitant]
     Active Substance: BUDESONIDE
     Indication: Product used for unknown indication
  5. CREON [Concomitant]
     Active Substance: PANCRELIPASE AMYLASE\PANCRELIPASE LIPASE\PANCRELIPASE PROTEASE
     Indication: Product used for unknown indication
  6. MAGNESIUM OXIDE [Concomitant]
     Active Substance: MAGNESIUM OXIDE
     Indication: Product used for unknown indication
  7. CLARITIN [Concomitant]
     Active Substance: LORATADINE
     Indication: Product used for unknown indication
  8. IRON [Concomitant]
     Active Substance: IRON
     Indication: Product used for unknown indication
  9. NEURONTIN [Concomitant]
     Active Substance: GABAPENTIN
     Indication: Product used for unknown indication

REACTIONS (1)
  - Intentional product use issue [Unknown]
